FAERS Safety Report 5475550-X (Version None)
Quarter: 2007Q4

REPORT INFORMATION
  Report Type: 
  Country: None (occurrence: None)
  Receive Date: 20071003
  Receipt Date: 20061121
  Transmission Date: 20080405
  Serious: No
  Sender: FDA-Public Use
  Company Number: US-KINGPHARMUSA00001-K200601507

PATIENT

DRUGS (8)
  1. SONATA [Suspect]
     Indication: INSOMNIA
     Dosage: 10 MG, QHS
     Route: 048
     Dates: start: 20050101
  2. KLONOPIN [Concomitant]
     Indication: DYSTONIA
     Dosage: 1 MG, TID
     Route: 048
  3. METFORMIN HCL [Concomitant]
     Indication: DIABETES MELLITUS
     Dosage: 500 MG, QD
     Route: 048
  4. TOPROL-XL [Concomitant]
     Indication: HYPERTENSION
     Dosage: 100 MG, QD
     Route: 048
  5. PREVACID [Concomitant]
     Indication: GASTROOESOPHAGEAL REFLUX DISEASE
     Dosage: UNK, QD
     Route: 048
  6. BACLOFEN [Concomitant]
     Dosage: 120 MG, QD
     Route: 048
  7. DEPAKOTE [Concomitant]
     Dosage: 1.1/2 GM, QD
     Route: 048
  8. HYTRIN [Concomitant]
     Indication: HYPERTENSION
     Dosage: UNK, QD
     Route: 048

REACTIONS (1)
  - MIDDLE INSOMNIA [None]
